FAERS Safety Report 5420257-8 (Version None)
Quarter: 2007Q3

REPORT INFORMATION
  Report Type: 
  Country: None (occurrence: None)
  Receive Date: 20070815
  Receipt Date: 20070731
  Transmission Date: 20080115
  Serious: Yes (Hospitalization)
  Sender: FDA-Public Use
  Company Number: 159380ISR

PATIENT
  Age: 51 Year
  Sex: Female

DRUGS (8)
  1. AZILECT [Suspect]
     Dosage: 1 MG (1MG, 1 IN 1 D)
     Dates: start: 20070514
  2. BUPROPION HYDROCHLORIDE [Suspect]
     Indication: DEPRESSION
     Dosage: 300 MG (150 MG, 2 IN 1 D)
     Dates: start: 20070606, end: 20070718
  3. OMEPRAZOLE [Concomitant]
  4. ETHINYL ESTRADIOL W/NORGESTREL [Concomitant]
  5. RISEDRONATE SODIUM [Concomitant]
  6. LEKOVIT CA [Concomitant]
  7. MELOXICAM [Concomitant]
  8. PRAMPIPEXOLE DIHYDROCHLORIDE [Concomitant]

REACTIONS (2)
  - CONVULSION [None]
  - DRUG INTERACTION [None]
